FAERS Safety Report 5267680-2 (Version None)
Quarter: 2007Q1

REPORT INFORMATION
  Report Type: 
  Country: None (occurrence: None)
  Receive Date: 20070316
  Receipt Date: 20070305
  Transmission Date: 20070707
  Serious: Yes (Hospitalization)
  Sender: FDA-Public Use
  Company Number: JP-PFIZER INC-2007017638

PATIENT
  Age: 46 Year
  Sex: Male

DRUGS (3)
  1. ZITHROMAC [Suspect]
     Indication: GINGIVITIS
     Dosage: DAILY DOSE:500MG
     Route: 048
     Dates: start: 20060927, end: 20060929
  2. BASEN [Concomitant]
     Route: 048
  3. AMARYL [Concomitant]
     Route: 048

REACTIONS (1)
  - GASTRIC ULCER [None]
